FAERS Safety Report 9759682 (Version 1)
Quarter: 2013Q4

REPORT INFORMATION
  Report Type: Spontaneous
  Country: GB (occurrence: None)
  Receive Date: 20131212
  Receipt Date: 20131212
  Transmission Date: 20140711
  Serious: Yes (Other)
  Sender: FDA-Public Use
  Company Number: AUR-APL-2013-10231

PATIENT
  Age: 5 Year
  Sex: Female

DRUGS (3)
  1. LEVETIRACETAM [Suspect]
     Indication: PRODUCT USED FOR UNKNOWN INDICATION
     Dosage: TOTAL DAILY DOSE OF 620 (UNITS UNSPECIFIED)
  2. CLOBAZAM [Concomitant]
  3. LAMOTRIGINE [Concomitant]

REACTIONS (1)
  - Neurosurgery [None]
